FAERS Safety Report 9637065 (Version 1)
Quarter: 2013Q4

REPORT INFORMATION
  Report Type: Spontaneous
  Country: US (occurrence: US)
  Receive Date: 20131022
  Receipt Date: 20131022
  Transmission Date: 20140711
  Serious: No
  Sender: FDA-Public Use
  Company Number: US-009507513-1310USA006820

PATIENT
  Sex: Female

DRUGS (6)
  1. ZETIA [Suspect]
     Indication: BLOOD CHOLESTEROL INCREASED
     Dosage: 10 MG, QD
     Route: 048
     Dates: start: 201204, end: 201304
  2. ZETIA [Suspect]
     Dosage: 10 MG, QD
     Route: 048
     Dates: start: 201309, end: 2013
  3. METFORMIN [Concomitant]
     Dosage: UNKNOWN
  4. MYRBETRIQ [Concomitant]
     Dosage: UNKNOWN
  5. HYDROCHLORTHIAZID [Concomitant]
  6. AMLODIPINE [Concomitant]
     Dosage: UNKNOWN

REACTIONS (9)
  - Myalgia [Recovered/Resolved]
  - Confusional state [Recovered/Resolved]
  - Burning sensation [Recovered/Resolved]
  - Lethargy [Recovered/Resolved]
  - Pain in extremity [Recovered/Resolved]
  - Confusional state [Recovered/Resolved]
  - Burning sensation [Recovered/Resolved]
  - Lethargy [Recovered/Resolved]
  - Pain in extremity [Recovered/Resolved]
